FAERS Safety Report 9717562 (Version 4)
Quarter: 2014Q1

REPORT INFORMATION
  Report Type: Spontaneous
  Country: US (occurrence: US)
  Receive Date: 20131127
  Receipt Date: 20140318
  Transmission Date: 20141002
  Serious: Yes (Hospitalization)
  Sender: FDA-Public Use
  Company Number: US-UCBSA-098990

PATIENT
  Sex: Female
  Weight: 63.95 kg

DRUGS (12)
  1. CIMZIA [Suspect]
     Indication: CROHN^S DISEASE
     Dates: start: 20110411, end: 2012
  2. CIMZIA [Suspect]
     Indication: CROHN^S DISEASE
     Dates: start: 201311
  3. APRISO [Concomitant]
     Indication: CROHN^S DISEASE
     Dosage: EVERY MORNING
     Dates: start: 2013
  4. BABY ASA [Concomitant]
     Indication: PROPHYLAXIS
  5. CALCIUM/ VITAMIN D [Concomitant]
     Dosage: DAILY
  6. VITAMIN B COMPLEX [Concomitant]
     Dosage: DAILY
  7. OMEGA 3 [Concomitant]
     Dosage: DAILY
  8. MULTIVITAMIN [Concomitant]
     Dosage: DAILY
  9. COENZYME Q [Concomitant]
     Dosage: DAILY, ONLY WHEN TAKING RED RICE YEAST
  10. ACIDOPHILUS [Concomitant]
     Dosage: DAILY
  11. FLAGYL [Concomitant]
  12. LIPITOR [Concomitant]
     Indication: BLOOD CHOLESTEROL INCREASED

REACTIONS (5)
  - Incisional hernia [Recovered/Resolved]
  - Large intestinal stenosis [Unknown]
  - Abscess [Unknown]
  - Clostridium difficile infection [Recovered/Resolved]
  - Rash pruritic [Recovering/Resolving]
